FAERS Safety Report 10343790 (Version 4)
Quarter: 2014Q3

REPORT INFORMATION
  Report Type: Spontaneous
  Country: IE (occurrence: IE)
  Receive Date: 20140725
  Receipt Date: 20140908
  Transmission Date: 20150326
  Serious: Yes (Hospitalization, Other)
  Sender: FDA-Public Use
  Company Number: IE-ABBVIE-14P-229-1240269-00

PATIENT
  Age: 74 Year
  Sex: Female
  Weight: 64 kg

DRUGS (16)
  1. ASPIRIN NUSEAL [Concomitant]
     Indication: RHEUMATOID ARTHRITIS
     Route: 048
  2. FOLIC ACID. [Concomitant]
     Active Substance: FOLIC ACID
  3. LIPITOR [Concomitant]
     Active Substance: ATORVASTATIN CALCIUM
     Indication: PRODUCT USED FOR UNKNOWN INDICATION
  4. FOLIC ACID. [Concomitant]
     Active Substance: FOLIC ACID
     Dosage: 6/7
  5. PREDNISOLONE. [Concomitant]
     Active Substance: PREDNISOLONE
     Indication: PRODUCT USED FOR UNKNOWN INDICATION
     Dosage: DAILY DOSE IS VARIED AS PER DISEASE SEVERITY
     Dates: start: 201210, end: 201302
  6. METHOTREXATE [Concomitant]
     Active Substance: METHOTREXATE
     Indication: RHEUMATOID ARTHRITIS
     Route: 048
     Dates: start: 201011
  7. FOLIC ACID. [Concomitant]
     Active Substance: FOLIC ACID
     Indication: RHEUMATOID ARTHRITIS
     Route: 048
     Dates: start: 201011
  8. ASPIRIN. [Concomitant]
     Active Substance: ASPIRIN
     Indication: PRODUCT USED FOR UNKNOWN INDICATION
     Route: 048
     Dates: start: 201102, end: 201307
  9. SPIRIVA [Concomitant]
     Active Substance: TIOTROPIUM BROMIDE MONOHYDRATE
     Indication: PRODUCT USED FOR UNKNOWN INDICATION
     Route: 055
  10. HUMIRA [Suspect]
     Active Substance: ADALIMUMAB
     Indication: RHEUMATOID ARTHRITIS
     Dosage: 9 DOSES
     Route: 058
     Dates: start: 20121228, end: 20130419
  11. PLAQUENIL [Concomitant]
     Active Substance: HYDROXYCHLOROQUINE SULFATE
     Indication: RHEUMATOID ARTHRITIS
     Route: 048
     Dates: start: 201111
  12. SIMVASTATIN. [Concomitant]
     Active Substance: SIMVASTATIN
     Indication: PRODUCT USED FOR UNKNOWN INDICATION
     Dosage: NOCTE
     Route: 048
  13. OMESAR [Concomitant]
     Active Substance: OLMESARTAN MEDOXOMIL
     Indication: ANTIEMETIC SUPPORTIVE CARE
     Route: 048
  14. BUTRANS [Concomitant]
     Active Substance: BUPRENORPHINE
     Indication: PRODUCT USED FOR UNKNOWN INDICATION
  15. HYDROXYCHLOROQUINE [Concomitant]
     Active Substance: HYDROXYCHLOROQUINE
     Indication: PRODUCT USED FOR UNKNOWN INDICATION
  16. PARACETAMOL [Concomitant]
     Active Substance: ACETAMINOPHEN
     Indication: PRODUCT USED FOR UNKNOWN INDICATION
     Dosage: 4 IN 1 DAY PRN
     Route: 048

REACTIONS (12)
  - Rheumatoid arthritis [Unknown]
  - Lower respiratory tract infection [Recovering/Resolving]
  - Joint dislocation [Unknown]
  - Colorectal cancer metastatic [Recovered/Resolved]
  - Lung disorder [Unknown]
  - Mitral valve incompetence [Unknown]
  - Rectal haemorrhage [Recovered/Resolved with Sequelae]
  - Abdominal tenderness [Unknown]
  - Musculoskeletal stiffness [Unknown]
  - Coronary artery disease [Unknown]
  - Frequent bowel movements [Unknown]
  - Faecal incontinence [Recovered/Resolved]

NARRATIVE: CASE EVENT DATE: 201212
